FAERS Safety Report 19412855 (Version 1)
Quarter: 2021Q2

REPORT INFORMATION
  Report Type: Spontaneous
  Country: US (occurrence: US)
  Receive Date: 20210614
  Receipt Date: 20210614
  Transmission Date: 20210717
  Serious: No
  Sender: FDA-Public Use
  Company Number: US-TEVA-2021-US-1921528

PATIENT
  Age: 56 Year
  Sex: Female
  Weight: 48.53 kg

DRUGS (3)
  1. AJOVY [Suspect]
     Active Substance: FREMANEZUMAB-VFRM
  2. MAXALT [Concomitant]
     Active Substance: RIZATRIPTAN BENZOATE
     Indication: MIGRAINE
  3. AJOVY [Suspect]
     Active Substance: FREMANEZUMAB-VFRM
     Indication: MIGRAINE
     Route: 065
     Dates: start: 202012

REACTIONS (2)
  - Migraine [Unknown]
  - Drug ineffective [Unknown]

NARRATIVE: CASE EVENT DATE: 202104
